FAERS Safety Report 4863700-5 (Version None)
Quarter: 2005Q4

REPORT INFORMATION
  Report Type: 
  Country: None (occurrence: None)
  Receive Date: 20051222
  Receipt Date: 20051024
  Transmission Date: 20060501
  Serious: No
  Sender: FDA-Public Use
  Company Number: US-GLAXOSMITHKLINE-A0579378A

PATIENT
  Age: 77 Year
  Sex: Female

DRUGS (6)
  1. FLOVENT [Suspect]
     Dosage: 2PUFF TWICE PER DAY
     Route: 055
     Dates: start: 20000101
  2. FLONASE [Concomitant]
  3. CARDIZEM [Concomitant]
     Route: 065
  4. THYROID TAB [Concomitant]
     Route: 065
  5. ZYRTEC [Concomitant]
  6. NORVASC [Concomitant]

REACTIONS (3)
  - COUGH [None]
  - PHARMACEUTICAL PRODUCT COMPLAINT [None]
  - THROAT IRRITATION [None]
